FAERS Safety Report 15531901 (Version 1)
Quarter: 2018Q4

REPORT INFORMATION
  Report Type: Spontaneous
  Country: US (occurrence: US)
  Receive Date: 20181019
  Receipt Date: 20181019
  Transmission Date: 20190205
  Serious: No
  Sender: FDA-Public Use
  Company Number: US-ASTRAZENECA-2018SF22845

PATIENT
  Age: 8 Month
  Sex: Male

DRUGS (3)
  1. SYNAGIS [Suspect]
     Active Substance: PALIVIZUMAB
     Indication: PREMATURE BABY
     Dosage: MONTHLY
     Route: 030
     Dates: start: 201710, end: 20180129
  2. TYLENOL [Concomitant]
     Active Substance: ACETAMINOPHEN
     Indication: PYREXIA
     Route: 048
  3. ALBUTEROL. [Concomitant]
     Active Substance: ALBUTEROL
     Indication: WHEEZING
     Dosage: EVERY 4 - 6 HOURS
     Route: 055

REACTIONS (15)
  - Palpitations [Unknown]
  - Pyrexia [Unknown]
  - Depressed mood [Unknown]
  - Wheezing [Unknown]
  - Crying [Recovered/Resolved]
  - Croup infectious [Recovered/Resolved]
  - Discomfort [Recovered/Resolved]
  - Feeling abnormal [Recovered/Resolved]
  - Dyspnoea [Recovered/Resolved]
  - Irritability [Recovered/Resolved]
  - Vomiting [Unknown]
  - Urticaria [Recovered/Resolved]
  - Pulmonary congestion [Recovered/Resolved]
  - Cough [Unknown]
  - Product dose omission [Unknown]

NARRATIVE: CASE EVENT DATE: 201802
